FAERS Safety Report 4839397-7 (Version None)
Quarter: 2005Q4

REPORT INFORMATION
  Report Type: 
  Country: None (occurrence: None)
  Receive Date: 20051129
  Receipt Date: 20050310
  Transmission Date: 20060501
  Serious: No
  Sender: FDA-Public Use
  Company Number: US-GLAXOSMITHKLINE-A0549246A

PATIENT
  Age: 60 Year
  Sex: Male

DRUGS (9)
  1. WELLBUTRIN [Suspect]
     Indication: DEPRESSION
     Dosage: 150MG PER DAY
     Route: 048
     Dates: start: 20050224
  2. LIPITOR [Concomitant]
  3. ATENOLOL [Concomitant]
  4. LOTENSIN [Concomitant]
  5. XANAX [Concomitant]
  6. LEXAPRO [Concomitant]
  7. METHADONE [Concomitant]
  8. PROSCAR [Concomitant]
  9. FLOMAX [Concomitant]

REACTIONS (3)
  - CRYING [None]
  - DEPRESSION [None]
  - DRUG INEFFECTIVE [None]
